FAERS Safety Report 4681821-7 (Version None)
Quarter: 2005Q2

REPORT INFORMATION
  Report Type: 
  Country: None (occurrence: None)
  Receive Date: 20050602
  Receipt Date: 20050524
  Transmission Date: 20051028
  Serious: Yes (Death, Other)
  Sender: FDA-Public Use
  Company Number: 2005-05-1711

PATIENT
  Sex: Female

DRUGS (4)
  1. SALBUTAMOL SULPHATE ORAL AEROSOL [Suspect]
     Dosage: ORAL AER INH
     Route: 048
  2. ATROVENT [Suspect]
  3. PREDNISOLONE [Suspect]
  4. FOSAMAX [Suspect]

REACTIONS (2)
  - CARDIAC FAILURE [None]
  - CHRONIC OBSTRUCTIVE AIRWAYS DISEASE EXACERBATED [None]
